FAERS Safety Report 8214123-2 (Version None)
Quarter: 2012Q1

REPORT INFORMATION
  Report Type: 
  Country: None (occurrence: None)
  Receive Date: 20120316
  Receipt Date: 20120313
  Transmission Date: 20120608
  Serious: No
  Sender: FDA-Public Use
  Company Number: US-PFIZER INC-2012066537

PATIENT
  Sex: Female
  Weight: 68.027 kg

DRUGS (2)
  1. LOSARTAN [Concomitant]
     Indication: HYPERTENSION
     Dosage: UNK
  2. FLECTOR [Suspect]
     Indication: PAIN
     Dosage: UNK, 2X/DAY
     Route: 061
     Dates: start: 20120308, end: 20120301

REACTIONS (1)
  - DRUG INEFFECTIVE [None]
